FAERS Safety Report 15452798 (Version 2)
Quarter: 2018Q4

REPORT INFORMATION
  Report Type: Spontaneous
  Country: FR (occurrence: FR)
  Receive Date: 20181001
  Receipt Date: 20181121
  Transmission Date: 20190204
  Serious: Yes (Other)
  Sender: FDA-Public Use
  Company Number: FR-009507513-1809FRA009090

PATIENT
  Age: 23 Year
  Sex: Female

DRUGS (2)
  1. NEXPLANON [Suspect]
     Active Substance: ETONOGESTREL
     Dosage: THE FIRST ONE, UNK
     Route: 059
     Dates: end: 20180918
  2. NEXPLANON [Suspect]
     Active Substance: ETONOGESTREL
     Dosage: THE SECOND ONE (LEFT ARM), UNK
     Route: 059
     Dates: start: 20180918, end: 20180918

REACTIONS (6)
  - Implant site oedema [Recovered/Resolved]
  - Implant site pain [Recovered/Resolved]
  - Implant site erythema [Recovered/Resolved]
  - Haemorrhage subcutaneous [Recovered/Resolved]
  - Implant site swelling [Recovered/Resolved]
  - Device deployment issue [Recovered/Resolved]

NARRATIVE: CASE EVENT DATE: 2018
